FAERS Safety Report 19066213 (Version 1)
Quarter: 2021Q1

REPORT INFORMATION
  Report Type: Other
  Country: DE (occurrence: DE)
  Receive Date: 20210328
  Receipt Date: 20210328
  Transmission Date: 20210420
  Serious: Yes (Hospitalization)
  Sender: FDA-Public Use
  Company Number: DE-GLENMARK PHARMACEUTICALS-2021GMK052904

PATIENT

DRUGS (7)
  1. L?THYROXINE [LEVOTHYROXINE] [Concomitant]
     Active Substance: LEVOTHYROXINE
     Indication: HYPOTHYROIDISM
     Dosage: 37.5 MICROGRAM, QD
     Route: 048
     Dates: start: 20171124
  2. L?ARGININE [ARGININE] [Concomitant]
     Active Substance: ARGININE
     Indication: PRODUCT USED FOR UNKNOWN INDICATION
     Dosage: 6 GRAM, QD (3 SEPERATE DOSES)
     Route: 048
  3. DIAZEPAM. [Concomitant]
     Active Substance: DIAZEPAM
     Indication: EPILEPSY
     Dosage: 10 MILLIGRAM (BEI KRAMPFANFALL } 3 MINUTEN)
     Route: 054
  4. COENZYM Q10 [Concomitant]
     Indication: MELAS SYNDROME
     Dosage: 300 MILLIGRAM, OD
     Route: 048
     Dates: start: 20150409
  5. OXCARBAZEPIN [Suspect]
     Active Substance: OXCARBAZEPINE
     Indication: EPILEPSY
     Dosage: 900 MILLIGRAM, QD (300?0?600MG)
     Route: 048
     Dates: start: 20150316
  6. TOPIRAMAT [Suspect]
     Active Substance: TOPIRAMATE
     Indication: EPILEPSY
     Dosage: 125 MILLIGRAM, QD (50?0?75MG)
     Route: 048
  7. KEPPRA [Suspect]
     Active Substance: LEVETIRACETAM
     Indication: EPILEPSY
     Dosage: 1.8 GRAM, QD
     Route: 048
     Dates: start: 20150316

REACTIONS (4)
  - Hyponatraemia [Unknown]
  - Headache [Unknown]
  - Blood osmolarity decreased [Unknown]
  - Paraesthesia [Unknown]

NARRATIVE: CASE EVENT DATE: 20180725
